FAERS Safety Report 20808777 (Version 2)
Quarter: 2022Q3

REPORT INFORMATION
  Report Type: Spontaneous
  Country: US (occurrence: US)
  Receive Date: 20220510
  Receipt Date: 20220810
  Transmission Date: 20221026
  Serious: Yes (Other)
  Sender: FDA-Public Use
  Company Number: US-PFIZER INC-202200634681

PATIENT
  Age: 66 Year
  Sex: Female
  Weight: 97.52 kg

DRUGS (4)
  1. AROMASIN [Suspect]
     Active Substance: EXEMESTANE
     Indication: Breast cancer metastatic
     Dosage: 25 MG, DAILY
     Route: 048
     Dates: start: 201908
  2. IBRANCE [Concomitant]
     Active Substance: PALBOCICLIB
     Indication: Breast cancer metastatic
     Dosage: 75 MG, TWO WEEKS ON, TWO WEEKS OFF
     Route: 048
     Dates: start: 201804
  3. SIROLIMUS [Concomitant]
     Active Substance: SIROLIMUS
     Indication: Renal transplant
     Dosage: 1 MG, DAILY
     Dates: start: 202203
  4. PREDNISONE [Concomitant]
     Active Substance: PREDNISONE
     Indication: Renal transplant
     Dosage: 2.5 MG, 1X/DAY
     Dates: start: 201701

REACTIONS (6)
  - Eye degenerative disorder [Not Recovered/Not Resolved]
  - Vaginal disorder [Not Recovered/Not Resolved]
  - Vulvovaginal dryness [Unknown]
  - Alopecia [Not Recovered/Not Resolved]
  - Back pain [Unknown]
  - Pain in extremity [Unknown]

NARRATIVE: CASE EVENT DATE: 20200101
